FAERS Safety Report 4664073-3 (Version None)
Quarter: 2005Q2

REPORT INFORMATION
  Report Type: 
  Country: None (occurrence: None)
  Receive Date: 20050516
  Receipt Date: 20050510
  Transmission Date: 20051028
  Serious: Yes (Death)
  Sender: FDA-Public Use
  Company Number: 2005-127959-NL

PATIENT
  Age: 84 Year
  Sex: Female

DRUGS (2)
  1. MIRTAZAPINE [Suspect]
     Dosage: 30 MG ONCE, ORAL
     Route: 048
     Dates: start: 20050318, end: 20050318
  2. FLUOXETINE HCL [Suspect]
     Indication: DEPRESSION
     Dosage: DF

REACTIONS (2)
  - ACCIDENTAL EXPOSURE [None]
  - MYOCARDIAL INFARCTION [None]
